FAERS Safety Report 7540554-X (Version None)
Quarter: 2011Q2

REPORT INFORMATION
  Report Type: 
  Country: None (occurrence: None)
  Receive Date: 20110610
  Receipt Date: 20110602
  Transmission Date: 20111010
  Serious: Yes (Hospitalization)
  Sender: FDA-Public Use
  Company Number: B0723666A

PATIENT
  Sex: Male
  Weight: 62 kg

DRUGS (3)
  1. CAPECITABINE [Suspect]
     Indication: GASTRIC CANCER
     Dosage: 1450MG TWICE PER DAY
     Route: 048
     Dates: start: 20110518, end: 20110522
  2. LAPATINIB [Suspect]
     Indication: GASTRIC CANCER
     Route: 048
     Dates: start: 20110518, end: 20110522
  3. OXALIPLATIN [Suspect]
     Indication: GASTRIC CANCER
     Dosage: 222.4MG PER DAY
     Route: 042
     Dates: start: 20110518

REACTIONS (3)
  - CORONARY ARTERY DISEASE [None]
  - ACUTE CORONARY SYNDROME [None]
  - PAIN [None]
